FAERS Safety Report 5270335-1 (Version None)
Quarter: 2007Q1

REPORT INFORMATION
  Report Type: 
  Country: None (occurrence: None)
  Receive Date: 20070320
  Receipt Date: 20070308
  Transmission Date: 20070707
  Serious: Yes (Other)
  Sender: FDA-Public Use
  Company Number: US-PFIZER INC-2006150346

PATIENT
  Sex: Male

DRUGS (9)
  1. BEXTRA [Suspect]
     Indication: PAIN
     Route: 048
     Dates: start: 20030926, end: 20041129
  2. BEXTRA [Suspect]
     Indication: INFLAMMATION
  3. BEXTRA [Suspect]
     Indication: OSTEOARTHRITIS
  4. VIOXX [Concomitant]
  5. ULTRAM [Concomitant]
  6. PERCOCET [Concomitant]
  7. CELEBREX [Concomitant]
  8. ASPIRIN [Concomitant]
  9. ALEVE [Concomitant]

REACTIONS (2)
  - CORONARY ARTERY DISEASE [None]
  - MYOCARDIAL INFARCTION [None]
